FAERS Safety Report 14928455 (Version 1)
Quarter: 2018Q2

REPORT INFORMATION
  Report Type: Spontaneous
  Country: US (occurrence: US)
  Receive Date: 20180523
  Receipt Date: 20180523
  Transmission Date: 20180711
  Serious: No
  Sender: FDA-Public Use
  Company Number: US-FDC LIMITED-2017RIS00334

PATIENT
  Sex: Female
  Weight: 55.78 kg

DRUGS (3)
  1. TIMOLOL MALEATE. [Suspect]
     Active Substance: TIMOLOL MALEATE
     Indication: INTRAOCULAR PRESSURE INCREASED
     Dosage: 1 GTT 2X/DAY TO EACH EYE
     Route: 047
     Dates: start: 20171020, end: 201710
  2. ARIMIDEX [Concomitant]
     Active Substance: ANASTROZOLE
     Indication: BREAST CANCER
     Dosage: UNK
     Dates: start: 2009
  3. CARDIA [Concomitant]
     Active Substance: AJMALINE
     Indication: HYPERTENSION

REACTIONS (2)
  - Product storage error [Recovered/Resolved]
  - Eye irritation [Recovered/Resolved]
